FAERS Safety Report 14392553 (Version 1)
Quarter: 2018Q1

REPORT INFORMATION
  Report Type: Spontaneous
  Country: US (occurrence: US)
  Receive Date: 20180112
  Receipt Date: 20180112
  Transmission Date: 20180509
  Serious: No
  Sender: FDA-Public Use
  Company Number: None

PATIENT
  Age: 61 Year
  Sex: Female
  Weight: 63 kg

DRUGS (7)
  1. AZITHROMICINE [Suspect]
     Active Substance: AZITHROMYCIN DIHYDRATE
     Indication: INFLUENZA
     Dosage: ?          QUANTITY:1 TABLET(S);?
     Route: 048
     Dates: start: 20180106, end: 20180109
  2. CRESTOR [Concomitant]
     Active Substance: ROSUVASTATIN CALCIUM
  3. SINTHROID [Concomitant]
  4. AZITHROMICINE [Suspect]
     Active Substance: AZITHROMYCIN DIHYDRATE
     Indication: COUGH
     Dosage: ?          QUANTITY:1 TABLET(S);?
     Route: 048
     Dates: start: 20180106, end: 20180109
  5. COQ10 [Concomitant]
     Active Substance: UBIDECARENONE
  6. WATER PILL [Concomitant]
     Active Substance: UNSPECIFIED INGREDIENT
  7. VITAMIN C [Concomitant]
     Active Substance: ASCORBIC ACID

REACTIONS (1)
  - Dysgeusia [None]

NARRATIVE: CASE EVENT DATE: 20180109
